FAERS Safety Report 6927928-2 (Version None)
Quarter: 2010Q3

REPORT INFORMATION
  Report Type: 
  Country: None (occurrence: None)
  Receive Date: 20100817
  Receipt Date: 20100805
  Transmission Date: 20110219
  Serious: Yes (Other)
  Sender: FDA-Public Use
  Company Number: CO-PFIZER INC-2010046586

PATIENT
  Age: 62 Year
  Sex: Female

DRUGS (10)
  1. CHAMPIX [Suspect]
     Indication: SMOKING CESSATION THERAPY
     Dosage: ONE AND A HALF TABLET A DAY
     Route: 048
     Dates: start: 20081213
  2. CHAMPIX [Suspect]
     Dosage: ONE TABLET A DAY
     Route: 048
     Dates: end: 20090307
  3. OMEPRAZOLE [Concomitant]
     Indication: GASTRITIS
     Dosage: 20 MG, 1X/DAY
  4. LOSARTAN [Concomitant]
     Indication: HYPERTENSION
     Dosage: 50 MG, 2X/DAY
  5. ASPIRIN [Concomitant]
     Indication: HYPERTENSION
     Dosage: 100 MG, 1X/DAY
  6. SPIRIVA [Concomitant]
     Indication: CHRONIC OBSTRUCTIVE PULMONARY DISEASE
     Dosage: UNK
  7. BIO-TROPIN [Concomitant]
     Dosage: UNK
  8. VALPROIC ACID [Concomitant]
     Indication: MENTAL DISORDER
     Dosage: UNK
  9. REMERON [Concomitant]
     Dosage: 30 MG, 1X/DAY
  10. TRAZODONE [Concomitant]
     Indication: INSOMNIA
     Dosage: 25 MG, 1X/DAY

REACTIONS (6)
  - AGGRESSION [None]
  - ASOCIAL BEHAVIOUR [None]
  - DEPRESSION [None]
  - INSOMNIA [None]
  - IRRITABILITY [None]
  - MENTAL DISORDER [None]
